FAERS Safety Report 24633708 (Version 1)
Quarter: 2024Q4

REPORT INFORMATION
  Report Type: Spontaneous
  Country: US (occurrence: US)
  Receive Date: 20241118
  Receipt Date: 20241118
  Transmission Date: 20250115
  Serious: Yes (Death, Hospitalization, Other)
  Sender: ABBVIE
  Company Number: US-ABBVIE-6008706

PATIENT
  Age: 86 Year
  Sex: Female

DRUGS (1)
  1. IMBRUVICA [Suspect]
     Active Substance: IBRUTINIB
     Indication: Lymphoma
     Dosage: FORM STRENGTH: 140 MILLIGRAM
     Route: 048
     Dates: start: 2018

REACTIONS (7)
  - Septic shock [Fatal]
  - Dementia [Unknown]
  - Cerebrovascular accident [Unknown]
  - Oxygen saturation decreased [Unknown]
  - Hypotension [Unknown]
  - Unresponsive to stimuli [Unknown]
  - Dysphagia [Unknown]

NARRATIVE: CASE EVENT DATE: 20241016
